FAERS Safety Report 4566153-X (Version None)
Quarter: 2005Q1

REPORT INFORMATION
  Report Type: 
  Country: None (occurrence: None)
  Receive Date: 20050110
  Receipt Date: 20050110
  Transmission Date: 20050727
  Serious: Yes (Other)
  Sender: FDA-Public Use
  Company Number: None

PATIENT
  Sex: Female
  Weight: 105.6881 kg

DRUGS (1)
  1. FELDENE [Suspect]
     Indication: OSTEOARTHRITIS
     Dosage: SEE IMAGE

REACTIONS (5)
  - ABDOMINAL DISCOMFORT [None]
  - ARTHRITIS [None]
  - CONDITION AGGRAVATED [None]
  - PAIN [None]
  - PHARMACEUTICAL PRODUCT COMPLAINT [None]
